FAERS Safety Report 7438211-3 (Version None)
Quarter: 2011Q2

REPORT INFORMATION
  Report Type: 
  Country: None (occurrence: None)
  Receive Date: 20110426
  Receipt Date: 20110316
  Transmission Date: 20111010
  Serious: Yes (Hospitalization)
  Sender: FDA-Public Use
  Company Number: US-BAYER-201038842NA

PATIENT
  Age: 19 Year
  Sex: Female
  Weight: 58.957 kg

DRUGS (9)
  1. OCELLA [Suspect]
     Indication: ORAL CONTRACEPTION
     Dosage: UNK UNK, QD
     Route: 048
  2. SEROQUEL [Concomitant]
     Indication: ANXIETY
     Dosage: UNK
     Dates: start: 20080601, end: 20080901
  3. SUBOXONE [Concomitant]
     Indication: PRODUCT USED FOR UNKNOWN INDICATION
     Dosage: 8 MG, UNK
     Dates: start: 20080601
  4. YASMIN [Suspect]
     Indication: ORAL CONTRACEPTION
     Dosage: UNK UNK, QD
     Route: 048
  5. BUSPIRONE HYDROCHLORIDE [Concomitant]
     Indication: PRODUCT USED FOR UNKNOWN INDICATION
     Dosage: 15 MG, UNK
     Dates: start: 20080601
  6. YAZ [Suspect]
     Indication: PRODUCT USED FOR UNKNOWN INDICATION
     Route: 048
  7. YASMIN [Suspect]
     Indication: PREMENSTRUAL SYNDROME
  8. OCELLA [Suspect]
     Indication: PREMENSTRUAL SYNDROME
  9. SUBOXONE [Concomitant]
     Dosage: 2 MG, UNK
     Dates: start: 20080601

REACTIONS (5)
  - GALLBLADDER DISORDER [None]
  - PANCREATIC INJURY [None]
  - CHOLECYSTITIS CHRONIC [None]
  - BILE DUCT STONE [None]
  - INJURY [None]
